FAERS Safety Report 19777290 (Version 1)
Quarter: 2021Q3

REPORT INFORMATION
  Report Type: Other
  Country: CA (occurrence: CA)
  Receive Date: 20210902
  Receipt Date: 20210902
  Transmission Date: 20211014
  Serious: Yes (Other)
  Sender: FDA-Public Use
  Company Number: CA-APOTEX-2021AP039878

PATIENT

DRUGS (1)
  1. TRAMADOL. [Suspect]
     Active Substance: TRAMADOL
     Indication: PAIN
     Dosage: UNK
     Route: 065

REACTIONS (18)
  - Sputum discoloured [Unknown]
  - Pain in jaw [Unknown]
  - Otorrhoea [Unknown]
  - Amnesia [Unknown]
  - Head injury [Unknown]
  - Periorbital swelling [Unknown]
  - Mydriasis [Unknown]
  - Syncope [Unknown]
  - Somnambulism [Unknown]
  - Balance disorder [Unknown]
  - Limb injury [Unknown]
  - Muscular weakness [Unknown]
  - Insomnia [Unknown]
  - Dizziness [Unknown]
  - Fall [Unknown]
  - Dysuria [Unknown]
  - Nausea [Unknown]
  - Somnolence [Unknown]
